FAERS Safety Report 17487315 (Version 1)
Quarter: 2020Q1

REPORT INFORMATION
  Report Type: Spontaneous
  Country: US (occurrence: US)
  Receive Date: 20200302
  Receipt Date: 20200302
  Transmission Date: 20200409
  Serious: Yes (Other)
  Sender: FDA-Public Use
  Company Number: None

PATIENT
  Age: 66 Year
  Sex: Male
  Weight: 69.1 kg

DRUGS (2)
  1. PERJETA [Concomitant]
     Active Substance: PERTUZUMAB
  2. HERCEPTIN [Suspect]
     Active Substance: TRASTUZUMAB

REACTIONS (8)
  - Chills [None]
  - Pyrexia [None]
  - Respiratory rate increased [None]
  - Blood pressure increased [None]
  - Heart rate increased [None]
  - Chest discomfort [None]
  - Wound drainage [None]
  - Feeling cold [None]

NARRATIVE: CASE EVENT DATE: 20200106
